FAERS Safety Report 16079467 (Version 1)
Quarter: 2019Q1

REPORT INFORMATION
  Report Type: Spontaneous
  Country: RU (occurrence: RU)
  Receive Date: 20190315
  Receipt Date: 20190315
  Transmission Date: 20190418
  Serious: Yes (Hospitalization, Other)
  Sender: FDA-Public Use
  Company Number: RU-ASTRAZENECA-2019SE40195

PATIENT
  Sex: Female
  Weight: 90 kg

DRUGS (3)
  1. JANOVIA [Concomitant]
  2. ZOCARDIS [Concomitant]
  3. BRILINTA [Suspect]
     Active Substance: TICAGRELOR
     Route: 048

REACTIONS (2)
  - Chest pain [Unknown]
  - Acute coronary syndrome [Unknown]
